FAERS Safety Report 10020022 (Version 2)
Quarter: 2014Q2

REPORT INFORMATION
  Report Type: Spontaneous
  Country: US (occurrence: US)
  Receive Date: 20140318
  Receipt Date: 20140527
  Transmission Date: 20141212
  Serious: Yes (Other)
  Sender: FDA-Public Use
  Company Number: US-TEVA-469321USA

PATIENT
  Age: 52 Year
  Sex: Female

DRUGS (1)
  1. GLYBURIDE AND METFORMIN [Suspect]
     Indication: DIABETES MELLITUS
     Dosage: 1.25 MG /250 MG; 3 TABLETS THREE TIMES A DAY
     Dates: start: 20140309

REACTIONS (4)
  - Cardiac flutter [Unknown]
  - Blood glucose increased [Recovering/Resolving]
  - Insomnia [Unknown]
  - Drug ineffective [Recovering/Resolving]
